FAERS Safety Report 8961950 (Version 1)
Quarter: 2012Q4

REPORT INFORMATION
  Report Type: 
  Country: JP (occurrence: JP)
  Receive Date: 20121213
  Receipt Date: 20121213
  Transmission Date: 20130627
  Serious: Yes (Hospitalization)
  Sender: FDA-Public Use
  Company Number: JP-B.I. PHARMACEUTICALS,INC./RIDGEFIELD-2012-BI-02583NB

PATIENT
  Age: 74 Year
  Sex: Male

DRUGS (8)
  1. PRAZAXA [Suspect]
     Route: 065
     Dates: end: 20121126
  2. ARTIST [Concomitant]
     Route: 065
  3. DIGOXIN [Concomitant]
     Route: 065
  4. LASIX [Concomitant]
     Route: 065
  5. PLAVIX [Concomitant]
     Route: 065
  6. TAKEPRON [Concomitant]
     Route: 065
  7. SEPAMIT [Concomitant]
     Route: 065
  8. UNKNOWNDRUG [Concomitant]
     Route: 065

REACTIONS (1)
  - Pneumonia [Unknown]
